FAERS Safety Report 13247894 (Version 2)
Quarter: 2017Q1

REPORT INFORMATION
  Report Type: Spontaneous
  Country: TR (occurrence: TR)
  Receive Date: 20170217
  Receipt Date: 20170310
  Transmission Date: 20170428
  Serious: Yes (Other)
  Sender: FDA-Public Use
  Company Number: TR-BAUSCH-BL-2017-004068

PATIENT
  Age: 18 Year
  Sex: Female

DRUGS (2)
  1. LOCOID LIPOCREAM [Suspect]
     Active Substance: HYDROCORTISONE BUTYRATE
     Indication: ECZEMA
     Dosage: 4 TO 5 DAYS
     Route: 061
  2. LOCOID LIPOCREAM [Suspect]
     Active Substance: HYDROCORTISONE BUTYRATE
     Dosage: UNKNOWN FREQ
     Route: 061

REACTIONS (1)
  - Drug ineffective [Unknown]
